FAERS Safety Report 19506494 (Version 12)
Quarter: 2023Q1

REPORT INFORMATION
  Report Type: Report from Study
  Country: US (occurrence: US)
  Receive Date: 20210708
  Receipt Date: 20230317
  Transmission Date: 20230418
  Serious: Yes (Death, Hospitalization)
  Sender: FDA-Public Use
  Company Number: NVSC2021US147634

PATIENT
  Sex: Female
  Weight: 74.84 kg

DRUGS (5)
  1. TREPROSTINIL [Suspect]
     Active Substance: TREPROSTINIL
     Indication: Pulmonary arterial hypertension
     Dosage: 60 NG/KG/MIN, CONT
     Route: 058
     Dates: start: 20210616
  2. TREPROSTINIL [Suspect]
     Active Substance: TREPROSTINIL
     Dosage: 60 NG/KG/MIN, CONT
     Route: 058
  3. TREPROSTINIL [Suspect]
     Active Substance: TREPROSTINIL
     Dosage: 60 NG/KG/MIN, CONT
     Route: 058
  4. ADEMPAS [Concomitant]
     Active Substance: RIOCIGUAT
     Indication: Product used for unknown indication
     Dosage: UNK
     Route: 065
  5. WARFARIN [Concomitant]
     Active Substance: WARFARIN
     Indication: Product used for unknown indication
     Dosage: UNK
     Route: 065

REACTIONS (12)
  - Death [Fatal]
  - Ascites [Unknown]
  - Fluid retention [Unknown]
  - Weight decreased [Unknown]
  - Dyspnoea [Unknown]
  - Diarrhoea [Unknown]
  - Infusion site pain [Unknown]
  - Infusion site pruritus [Unknown]
  - Infusion site erythema [Unknown]
  - Infusion site rash [Unknown]
  - Infusion site mass [Unknown]
  - Infusion site reaction [Unknown]

NARRATIVE: CASE EVENT DATE: 20210101
